FAERS Safety Report 4375426-5 (Version None)
Quarter: 2004Q2

REPORT INFORMATION
  Report Type: 
  Country: None (occurrence: None)
  Receive Date: 20040610
  Receipt Date: 20040422
  Transmission Date: 20050107
  Serious: Yes (Disabling, Other)
  Sender: FDA-Public Use
  Company Number: 200413132US

PATIENT
  Sex: Female
  Weight: 71.8 kg

DRUGS (3)
  1. CARAC [Suspect]
     Indication: PRECANCEROUS SKIN LESION
     Dosage: DOSE: 0.5%
     Route: 061
     Dates: start: 20040407, end: 20040420
  2. ADALAT [Concomitant]
     Indication: HYPERTENSION
  3. ASPIRIN [Concomitant]
     Indication: ANTICOAGULANT THERAPY

REACTIONS (9)
  - ARTHRALGIA [None]
  - BACK PAIN [None]
  - CHEST DISCOMFORT [None]
  - CHEST PAIN [None]
  - CHILLS [None]
  - COSTOCHONDRITIS [None]
  - PAIN IN EXTREMITY [None]
  - PRURITUS [None]
  - YAWNING [None]
